FAERS Safety Report 6265997-6 (Version None)
Quarter: 2009Q3

REPORT INFORMATION
  Report Type: 
  Country: None (occurrence: None)
  Receive Date: 20090709
  Receipt Date: 20090709
  Transmission Date: 20100115
  Serious: Yes (Death, Life-Threatening, Hospitalization)
  Sender: FDA-Public Use
  Company Number: None

PATIENT
  Age: 84 Year
  Sex: Male
  Weight: 57.6068 kg

DRUGS (2)
  1. OXALIPLATIN [Suspect]
     Indication: PANCREATIC CARCINOMA
     Dosage: 116 MG DAYS 1 AND 15 EVER IV DRIP CYCLE 4
     Route: 041
     Dates: start: 20090602, end: 20090616
  2. SORAFENIB 200 MG TABLETS BAYER PHARMACEUTICALS [Suspect]
     Indication: PANCREATIC CARCINOMA
     Dosage: 200 MG DAILY PO
     Route: 048
     Dates: start: 20090602, end: 20090624

REACTIONS (11)
  - ABDOMINAL PAIN [None]
  - ABDOMINAL REBOUND TENDERNESS [None]
  - DISORIENTATION [None]
  - DYSPHAGIA [None]
  - FATIGUE [None]
  - INTESTINAL PERFORATION [None]
  - PERFORMANCE STATUS DECREASED [None]
  - PLATELET COUNT DECREASED [None]
  - REBOUND EFFECT [None]
  - SEPSIS [None]
  - UNRESPONSIVE TO STIMULI [None]
